FAERS Safety Report 6103027-7 (Version None)
Quarter: 2009Q1

REPORT INFORMATION
  Report Type: 
  Country: None (occurrence: None)
  Receive Date: 20090305
  Receipt Date: 20090304
  Transmission Date: 20090719
  Serious: Yes (Hospitalization, Other)
  Sender: FDA-Public Use
  Company Number: PHHO2007US14597

PATIENT
  Sex: Female
  Weight: 78 kg

DRUGS (10)
  1. LOTREL [Suspect]
     Indication: HYPERTENSION
     Dosage: LEVEL 1
     Route: 048
     Dates: start: 20050302
  2. LOTREL [Suspect]
     Dosage: LEVEL 3
     Route: 048
  3. ATENOLOL [Concomitant]
  4. PRANDIN [Concomitant]
  5. DEXAMETHASONE [Concomitant]
  6. PREVACID [Concomitant]
  7. ZOCOR [Concomitant]
  8. COUMADIN [Concomitant]
  9. REVLIMID [Concomitant]
  10. HUMULIN R [Concomitant]

REACTIONS (9)
  - ASTHENIA [None]
  - ATRIAL FIBRILLATION [None]
  - BLOOD CREATININE INCREASED [None]
  - BLOOD UREA INCREASED [None]
  - DIARRHOEA [None]
  - DIZZINESS [None]
  - NAUSEA [None]
  - RENAL FAILURE ACUTE [None]
  - TACHYCARDIA [None]
